FAERS Safety Report 9919956 (Version 2)
Quarter: 2017Q1

REPORT INFORMATION
  Report Type: Report from Study
  Country: JP (occurrence: JP)
  Receive Date: 20140224
  Receipt Date: 20170303
  Transmission Date: 20170429
  Serious: Yes (Hospitalization, Other)
  Sender: FDA-Public Use
  Company Number: JP-GILEAD-2014-0095010

PATIENT
  Age: 71 Year
  Sex: Female
  Weight: 41 kg

DRUGS (14)
  1. AMBRISENTAN [Suspect]
     Active Substance: AMBRISENTAN
     Indication: PULMONARY HYPERTENSION
     Dosage: 2.5 MG, QD
     Route: 048
     Dates: start: 20131211, end: 20131219
  2. NEORAL [Concomitant]
     Active Substance: CYCLOSPORINE
     Dosage: 50 MG, 1D
     Dates: start: 20131205, end: 20131212
  3. GASTER [Concomitant]
     Active Substance: FAMOTIDINE
  4. CARELOAD [Concomitant]
     Active Substance: BERAPROST SODIUM
     Route: 048
  5. REVATIO [Concomitant]
     Active Substance: SILDENAFIL CITRATE
     Route: 048
  6. EDIROL [Concomitant]
     Active Substance: ELDECALCITOL
     Route: 048
  7. LIPITOR [Concomitant]
     Active Substance: ATORVASTATIN CALCIUM
     Route: 048
  8. PREDNISOLONE. [Concomitant]
     Active Substance: PREDNISOLONE
     Dosage: UNK
  9. GASTER [Concomitant]
     Active Substance: FAMOTIDINE
     Route: 048
  10. AMBRISENTAN [Suspect]
     Active Substance: AMBRISENTAN
     Indication: POLYMYOSITIS
  11. PREDNISOLONE. [Concomitant]
     Active Substance: PREDNISOLONE
     Route: 065
  12. REVATIO [Concomitant]
     Active Substance: SILDENAFIL CITRATE
     Dosage: 1 DF, 1D
  13. NEORAL [Concomitant]
     Active Substance: CYCLOSPORINE
     Route: 048
  14. TRACLEER [Concomitant]
     Active Substance: BOSENTAN
     Dosage: 1 DF, 1D

REACTIONS (7)
  - Eyelid oedema [Unknown]
  - Weight increased [Unknown]
  - Flushing [Recovered/Resolved]
  - Interstitial lung disease [Recovered/Resolved]
  - Face oedema [Recovered/Resolved]
  - Dyspnoea [Recovered/Resolved]
  - Off label use [Recovered/Resolved]

NARRATIVE: CASE EVENT DATE: 20131211
